FAERS Safety Report 4867176-3 (Version None)
Quarter: 2005Q4

REPORT INFORMATION
  Report Type: 
  Country: None (occurrence: None)
  Receive Date: 20051222
  Receipt Date: 20051214
  Transmission Date: 20060501
  Serious: Yes (Hospitalization, Other)
  Sender: FDA-Public Use
  Company Number: 2005168584

PATIENT
  Sex: Female
  Weight: 68.0396 kg

DRUGS (6)
  1. LIPITOR [Suspect]
     Indication: BLOOD CHOLESTEROL INCREASED
     Dosage: 10 MG (10 MG, 1 IN 1 D)
     Dates: start: 19950101
  2. ZETIA [Suspect]
     Indication: ILL-DEFINED DISORDER
     Dosage: (10 MG)
     Dates: start: 20050601, end: 20050101
  3. LISINOPRIL [Concomitant]
  4. DAILY VITAMINS (VITAMINS NOS) [Concomitant]
  5. ASPIRIN [Concomitant]
  6. VITAMIN C (VITAMIN C) [Concomitant]

REACTIONS (4)
  - DRUG INEFFECTIVE [None]
  - GLAUCOMA [None]
  - SOMNOLENCE [None]
  - VASCULAR OCCLUSION [None]
